FAERS Safety Report 7184654-5 (Version None)
Quarter: 2010Q4

REPORT INFORMATION
  Report Type: 
  Country: None (occurrence: None)
  Receive Date: 20101222
  Receipt Date: 20101209
  Transmission Date: 20110411
  Serious: Yes (Other)
  Sender: FDA-Public Use
  Company Number: GXKR2010CH14013

PATIENT
  Age: 12 Month
  Sex: Male

DRUGS (1)
  1. METFIN (NGX) [Suspect]
     Dosage: 1000MG/DAY
     Route: 064

REACTIONS (5)
  - CONGENITAL ANOMALY [None]
  - DRUG EXPOSURE DURING PREGNANCY [None]
  - JAUNDICE NEONATAL [None]
  - POLYCYTHAEMIA [None]
  - SUBARACHNOID HAEMORRHAGE [None]
